FAERS Safety Report 10775706 (Version 1)
Quarter: 2015Q1

REPORT INFORMATION
  Report Type: Spontaneous
  Country: US (occurrence: None)
  Receive Date: 20150206
  Receipt Date: 20150206
  Transmission Date: 20150721
  Serious: Yes (Disabling)
  Sender: FDA-Public Use
  Company Number: None

PATIENT
  Age: 56 Year
  Sex: Female
  Weight: 77.11 kg

DRUGS (5)
  1. METFORMIN [Suspect]
     Active Substance: METFORMIN HYDROCHLORIDE
     Indication: TYPE 2 DIABETES MELLITUS
     Dosage: 850 MG, 2 PILLS, 1 MORNING, 1 EVENING, MOUTH
     Route: 048
     Dates: start: 20100307, end: 20150112
  2. MULTIVITAMIN [Concomitant]
     Active Substance: VITAMINS
  3. LISINOPRIL. [Suspect]
     Active Substance: LISINOPRIL
  4. ZOLPIDEM [Concomitant]
     Active Substance: ZOLPIDEM\ZOLPIDEM TARTRATE
  5. ATORVASTATIN 10 MG [Suspect]
     Active Substance: ATORVASTATIN

REACTIONS (9)
  - Sleep disorder [None]
  - Weight decreased [None]
  - Decreased appetite [None]
  - Vitamin D decreased [None]
  - Hypoaesthesia [None]
  - Heart rate increased [None]
  - Bone disorder [None]
  - Abdominal pain upper [None]
  - Alopecia [None]

NARRATIVE: CASE EVENT DATE: 20150106
